FAERS Safety Report 22279278 (Version 1)
Quarter: 2023Q2

REPORT INFORMATION
  Report Type: Spontaneous
  Country: US (occurrence: None)
  Receive Date: 20230502
  Receipt Date: 20230502
  Transmission Date: 20230721
  Serious: No
  Sender: FDA-Public Use
  Company Number: None

PATIENT
  Age: 57 Year
  Sex: Female
  Weight: 81 kg

DRUGS (5)
  1. LEVOTHYROXINE [Suspect]
     Active Substance: LEVOTHYROXINE
     Indication: Thyroid disorder
     Dosage: 1 TABLET DAILY ORAL?
     Route: 048
     Dates: start: 20230119, end: 20230315
  2. LISINOPRIL [Concomitant]
     Active Substance: LISINOPRIL
  3. Iron (ferrous sulfate) [Concomitant]
  4. VITAMIN D3 [Concomitant]
     Active Substance: CHOLECALCIFEROL
  5. ACETAMINOPHEN [Concomitant]
     Active Substance: ACETAMINOPHEN

REACTIONS (8)
  - Anxiety [None]
  - Feeling of body temperature change [None]
  - Memory impairment [None]
  - Tremor [None]
  - Mental disorder [None]
  - Rash [None]
  - Therapeutic product effect decreased [None]
  - Product substitution issue [None]

NARRATIVE: CASE EVENT DATE: 20230215
